FAERS Safety Report 7542671-7 (Version None)
Quarter: 2011Q2

REPORT INFORMATION
  Report Type: 
  Country: None (occurrence: None)
  Receive Date: 20110613
  Receipt Date: 20110608
  Transmission Date: 20111010
  Serious: Yes (Hospitalization, Other)
  Sender: FDA-Public Use
  Company Number: JP-PFIZER INC-2011116161

PATIENT
  Age: 63 Year
  Sex: Female

DRUGS (5)
  1. LIPITOR [Suspect]
     Dosage: 10 MG, DAILY
     Route: 048
  2. UNISIA [Suspect]
     Dosage: UNK
     Route: 048
  3. ANISTO [Concomitant]
     Dosage: UNK
     Route: 048
  4. HOKUNALIN [Concomitant]
     Dosage: UNK
  5. BUFFERIN [Concomitant]
     Dosage: UNK
     Route: 048

REACTIONS (2)
  - CEREBRAL THROMBOSIS [None]
  - OEDEMA PERIPHERAL [None]
